FAERS Safety Report 5674274-3 (Version None)
Quarter: 2008Q1

REPORT INFORMATION
  Report Type: 
  Country: None (occurrence: None)
  Receive Date: 20080320
  Receipt Date: 20080306
  Transmission Date: 20080703
  Serious: Yes (Hospitalization, Other)
  Sender: FDA-Public Use
  Company Number: CA-AMGEN-QUU265260

PATIENT
  Sex: Female
  Weight: 94.8 kg

DRUGS (26)
  1. ARANESP [Suspect]
     Indication: RENAL FAILURE CHRONIC
     Route: 058
     Dates: start: 20061101, end: 20070101
  2. EPREX [Suspect]
     Route: 058
     Dates: start: 20070205
  3. HYDROCHLOROTHIAZIDE [Concomitant]
     Dates: start: 20070205
  4. AVAPRO [Concomitant]
  5. ALLOPURINOL [Concomitant]
  6. PALAFER [Concomitant]
  7. LIPITOR [Concomitant]
  8. ASPIRIN [Concomitant]
  9. FOSINOPRIL SODIUM [Concomitant]
  10. NORVASC [Concomitant]
  11. HUMULIN N [Concomitant]
  12. HUMALOG [Concomitant]
  13. TRAZODONE HCL [Concomitant]
     Route: 048
  14. OXYCONTIN [Concomitant]
  15. AMITRIPTYLINE HCL [Concomitant]
  16. PREVACID [Concomitant]
  17. LASIX [Concomitant]
  18. XALATAN [Concomitant]
  19. TRUSOPT [Concomitant]
  20. BRIMONIDINE TARTRATE [Concomitant]
  21. CALCIUM WITH VITAMIN D [Concomitant]
  22. VITAMIN CAP [Concomitant]
  23. DOMPERIDONE [Concomitant]
  24. OXYIR [Concomitant]
  25. UNSPECIFIED MEDICATION [Concomitant]
  26. VITAMIN D [Concomitant]

REACTIONS (6)
  - ACUTE PRERENAL FAILURE [None]
  - CELLULITIS [None]
  - DERMATITIS [None]
  - HYPERPARATHYROIDISM SECONDARY [None]
  - OEDEMA PERIPHERAL [None]
  - RENAL IMPAIRMENT [None]
